FAERS Safety Report 4399264-2 (Version None)
Quarter: 2004Q3

REPORT INFORMATION
  Report Type: 
  Country: None (occurrence: None)
  Receive Date: 20040712
  Receipt Date: 20040622
  Transmission Date: 20050211
  Serious: Yes (Hospitalization, Other)
  Sender: FDA-Public Use
  Company Number: US_0405103165

PATIENT
  Age: 61 Year
  Sex: Female
  Weight: 65 kg

DRUGS (33)
  1. VANCOMYCIN [Suspect]
     Indication: ALPHA HAEMOLYTIC STREPTOCOCCAL INFECTION
     Dates: start: 20040229, end: 20040320
  2. VANCOMYCIN [Suspect]
     Indication: BLOOD CULTURE POSITIVE
     Dates: start: 20040229, end: 20040320
  3. VANCOMYCIN [Suspect]
     Indication: ALPHA HAEMOLYTIC STREPTOCOCCAL INFECTION
     Dosage: 1 G/3
     Dates: start: 20040421, end: 20040422
  4. VANCOMYCIN [Suspect]
     Indication: BLOOD CULTURE POSITIVE
     Dosage: 1 G/3
     Dates: start: 20040421, end: 20040422
  5. NEUPOGEN [Concomitant]
  6. CYTARABINE [Concomitant]
  7. DAUNORUBICIN HCL [Concomitant]
  8. ZOSYN [Concomitant]
  9. AZACTAM [Concomitant]
  10. CANCIDAS [Concomitant]
  11. LEVAQUIN [Concomitant]
  12. CLINDAMYCIN [Concomitant]
  13. ZOVIRAX [Concomitant]
  14. CLARITIN [Concomitant]
  15. NEUPOGEN (FILGRASTIM) [Concomitant]
  16. TOPROL-XL [Concomitant]
  17. ZANTAC [Concomitant]
  18. BENADRYL [Concomitant]
  19. ATIVAN [Concomitant]
  20. DEMEROL [Concomitant]
  21. MAGIC MOUTHWASH [Concomitant]
  22. ZOFRAN [Concomitant]
  23. K-DUR 10 [Concomitant]
  24. LASIX [Concomitant]
  25. SENOKOT [Concomitant]
  26. MULTI-VITAMINS [Concomitant]
  27. LIPITOR [Concomitant]
  28. LEXAPRO [Concomitant]
  29. ZOSYN [Concomitant]
  30. LEVAQUIN [Concomitant]
  31. FLAGYL [Concomitant]
  32. TUMS (CALCIUM CARBONATE) [Concomitant]
  33. VORICONAZOLE [Concomitant]

REACTIONS (19)
  - ALPHA HAEMOLYTIC STREPTOCOCCAL INFECTION [None]
  - ANOREXIA [None]
  - ASTHENIA [None]
  - BLOOD CULTURE POSITIVE [None]
  - CARDIAC FAILURE CONGESTIVE [None]
  - CHILLS [None]
  - COUGH [None]
  - HAEMOGLOBIN DECREASED [None]
  - HEADACHE [None]
  - HYPOXIA [None]
  - LOSS OF CONSCIOUSNESS [None]
  - LUNG INFILTRATION [None]
  - NASAL CONGESTION [None]
  - OEDEMA PERIPHERAL [None]
  - PLATELET COUNT DECREASED [None]
  - PYREXIA [None]
  - RASH ERYTHEMATOUS [None]
  - SYNCOPE VASOVAGAL [None]
  - WHITE BLOOD CELL COUNT DECREASED [None]
